FAERS Safety Report 9501925 (Version 1)
Quarter: 2013Q3

REPORT INFORMATION
  Report Type: Spontaneous
  Country: US (occurrence: US)
  Receive Date: 20130905
  Receipt Date: 20130905
  Transmission Date: 20140515
  Serious: No
  Sender: FDA-Public Use
  Company Number: US-ASTRAZENECA-2013SE49343

PATIENT
  Age: 29861 Day
  Sex: Male
  Weight: 96.2 kg

DRUGS (6)
  1. SYMBICORT [Suspect]
     Indication: TRACHEITIS
     Dosage: 160/ 4.5, 2 PUFFS, BID
     Route: 055
     Dates: start: 20130620, end: 20130624
  2. SYMBICORT [Suspect]
     Indication: UVULITIS
     Dosage: 160/ 4.5, 2 PUFFS, BID
     Route: 055
     Dates: start: 20130620, end: 20130624
  3. SYMBICORT [Suspect]
     Indication: RESPIRATORY DISORDER
     Dosage: 160/ 4.5, 2 PUFFS, BID
     Route: 055
     Dates: start: 20130620, end: 20130624
  4. FLOMAX [Concomitant]
     Indication: PROSTATIC DISORDER
  5. FINASTERIDE [Concomitant]
     Indication: PROSTATIC DISORDER
  6. VERAPAMIL [Concomitant]
     Indication: BLOOD PRESSURE MANAGEMENT

REACTIONS (6)
  - Chest pain [Recovered/Resolved]
  - Sputum retention [Not Recovered/Not Resolved]
  - Lower respiratory tract infection [Not Recovered/Not Resolved]
  - Candida infection [Not Recovered/Not Resolved]
  - Throat irritation [Not Recovered/Not Resolved]
  - Off label use [Unknown]
